FAERS Safety Report 7792937-0 (Version None)
Quarter: 2011Q4

REPORT INFORMATION
  Report Type: 
  Country: None (occurrence: None)
  Receive Date: 20111003
  Receipt Date: 20110922
  Transmission Date: 20120403
  Serious: Yes (Hospitalization)
  Sender: FDA-Public Use
  Company Number: PHFR2011GB05518

PATIENT
  Sex: Male

DRUGS (1)
  1. CLOZAPINE [Suspect]
     Indication: SCHIZOPHRENIA
     Route: 048
     Dates: start: 20060527, end: 20110922

REACTIONS (8)
  - NEUTROPHIL COUNT INCREASED [None]
  - JAUNDICE [None]
  - BLOOD BILIRUBIN INCREASED [None]
  - HEPATITIS VIRAL [None]
  - ALANINE AMINOTRANSFERASE INCREASED [None]
  - CHOLELITHIASIS [None]
  - WHITE BLOOD CELL COUNT INCREASED [None]
  - CHOLANGITIS [None]
